FAERS Safety Report 8584937-8 (Version None)
Quarter: 2012Q3

REPORT INFORMATION
  Report Type: 
  Country: None (occurrence: None)
  Receive Date: 20120802
  Receipt Date: 20120802
  Transmission Date: 20120928
  Serious: No
  Sender: FDA-Public Use
  Company Number: None

PATIENT
  Age: 79 Year
  Sex: Female
  Weight: 75 kg

DRUGS (1)
  1. CLOPIDOGREL [Suspect]
     Indication: TRANSIENT ISCHAEMIC ATTACK
     Dosage: 75 MG EVERY DAY  PO
     Route: 048
     Dates: start: 20110531, end: 20110606

REACTIONS (9)
  - SWELLING FACE [None]
  - OEDEMA PERIPHERAL [None]
  - DRY MOUTH [None]
  - ANGIOEDEMA [None]
  - PRURITUS [None]
  - INFLAMMATION [None]
  - RASH [None]
  - MULTIPLE ALLERGIES [None]
  - LOCAL SWELLING [None]
